FAERS Safety Report 5973853-3 (Version None)
Quarter: 2008Q4

REPORT INFORMATION
  Report Type: 
  Country: None (occurrence: None)
  Receive Date: 20081201
  Receipt Date: 20081119
  Transmission Date: 20090506
  Serious: Yes (Hospitalization)
  Sender: FDA-Public Use
  Company Number: GB-ROCHE-598006

PATIENT
  Age: 57 Year
  Sex: Male
  Weight: 76 kg

DRUGS (7)
  1. CAPECITABINE [Suspect]
     Route: 048
     Dates: start: 20080805, end: 20081001
  2. CISPLATIN [Concomitant]
     Route: 042
     Dates: start: 20080805
  3. CISPLATIN [Concomitant]
     Route: 042
     Dates: start: 20080826
  4. CISPLATIN [Concomitant]
     Route: 042
     Dates: start: 20080916
  5. EPIRUBICIN [Concomitant]
     Route: 042
     Dates: start: 20080805
  6. EPIRUBICIN [Concomitant]
     Route: 042
     Dates: start: 20080826
  7. EPIRUBICIN [Concomitant]
     Route: 042
     Dates: start: 20080916

REACTIONS (4)
  - BLOOD ALBUMIN DECREASED [None]
  - DIARRHOEA [None]
  - OEDEMA [None]
  - PROTEIN-LOSING GASTROENTEROPATHY [None]
